FAERS Safety Report 4451491-1 (Version None)
Quarter: 2004Q3

REPORT INFORMATION
  Report Type: 
  Country: None (occurrence: None)
  Receive Date: 20040915
  Receipt Date: 20040906
  Transmission Date: 20050211
  Serious: Yes (Hospitalization)
  Sender: FDA-Public Use
  Company Number: A01200404251

PATIENT
  Sex: Female

DRUGS (2)
  1. PLAQUENIL [Suspect]
     Indication: CONNECTIVE TISSUE DISORDER
     Dosage: 200 MG OD, ORAL
     Route: 048
     Dates: start: 20040101, end: 20040101
  2. PLAQUENIL [Suspect]
     Indication: PAIN
     Dosage: 200 MG OD, ORAL
     Route: 048
     Dates: start: 20040101, end: 20040101

REACTIONS (3)
  - ANGIONEUROTIC OEDEMA [None]
  - PHOTOSENSITIVITY REACTION [None]
  - RASH [None]
